FAERS Safety Report 8483386-0 (Version None)
Quarter: 2012Q3

REPORT INFORMATION
  Report Type: 
  Country: None (occurrence: None)
  Receive Date: 20120702
  Receipt Date: 20120624
  Transmission Date: 20120928
  Serious: Yes (Other)
  Sender: FDA-Public Use
  Company Number: US-AMGEN-USASP2012039983

PATIENT
  Age: 55 Year
  Sex: Male

DRUGS (1)
  1. NEUPOGEN [Suspect]
     Indication: ACUTE MYELOMONOCYTIC LEUKAEMIA
     Dosage: UNK

REACTIONS (1)
  - MONOCYTE COUNT INCREASED [None]
